FAERS Safety Report 13385475 (Version 1)
Quarter: 2017Q1

REPORT INFORMATION
  Report Type: Spontaneous
  Country: US (occurrence: US)
  Receive Date: 20170330
  Receipt Date: 20170330
  Transmission Date: 20170429
  Serious: Yes (Disabling)
  Sender: FDA-Public Use
  Company Number: None

PATIENT
  Age: 44 Year
  Sex: Female
  Weight: 72 kg

DRUGS (12)
  1. NUVIGIL [Suspect]
     Active Substance: ARMODAFINIL
     Indication: SOMNOLENCE
     Dosage: ?          QUANTITY:1 TABLET(S);?
     Route: 048
     Dates: start: 20091001, end: 20160902
  2. NORVASC [Concomitant]
     Active Substance: AMLODIPINE BESYLATE
  3. NUVIGIL [Suspect]
     Active Substance: ARMODAFINIL
     Indication: UPPER AIRWAY RESISTANCE SYNDROME
     Dosage: ?          QUANTITY:1 TABLET(S);?
     Route: 048
     Dates: start: 20091001, end: 20160902
  4. DEXEDRINE ER [Concomitant]
  5. DAILY MULTIVITAMIN [Concomitant]
     Active Substance: VITAMINS
  6. ZANTAC [Concomitant]
     Active Substance: RANITIDINE HYDROCHLORIDE
  7. NUVIGIL [Suspect]
     Active Substance: ARMODAFINIL
     Indication: SLEEP ATTACKS
     Dosage: ?          QUANTITY:1 TABLET(S);?
     Route: 048
     Dates: start: 20091001, end: 20160902
  8. PROZAC [Concomitant]
     Active Substance: FLUOXETINE HYDROCHLORIDE
  9. SPINAL CORD STIMULATOR [Concomitant]
  10. BCP [Concomitant]
  11. CARDURA [Concomitant]
     Active Substance: DOXAZOSIN MESYLATE
  12. PERCOCET [Concomitant]
     Active Substance: ACETAMINOPHEN\OXYCODONE HYDROCHLORIDE

REACTIONS (6)
  - Condition aggravated [None]
  - Radiculopathy [None]
  - Disease recurrence [None]
  - Therapy cessation [None]
  - Sleep attacks [None]
  - Somnolence [None]

NARRATIVE: CASE EVENT DATE: 20160902
